FAERS Safety Report 7490770-0 (Version None)
Quarter: 2011Q2

REPORT INFORMATION
  Report Type: 
  Country: None (occurrence: None)
  Receive Date: 20110519
  Receipt Date: 20110506
  Transmission Date: 20111010
  Serious: Yes (Death, Other)
  Sender: FDA-Public Use
  Company Number: US-BAYER-200940589NA

PATIENT
  Age: 78 Year
  Sex: Male
  Weight: 99.773 kg

DRUGS (32)
  1. TRASYLOL [Suspect]
     Dosage: 400 ML
     Route: 042
     Dates: start: 20020823
  2. GLUCOPHAGE [Concomitant]
     Dosage: 1000 MG, BID
     Route: 048
  3. LEVOPHED [Concomitant]
     Dosage: UNK
     Route: 042
     Dates: start: 20020823, end: 20020823
  4. HEPARIN [Concomitant]
     Dosage: UNK
     Route: 042
     Dates: start: 20020823
  5. TRASYLOL [Suspect]
     Indication: CORONARY ARTERY BYPASS
     Dosage: 1 ML, UNK
     Route: 042
     Dates: start: 20020823, end: 20020823
  6. TRASYLOL [Suspect]
     Indication: AORTIC VALVE REPLACEMENT
     Dosage: 200 ML PUMP PRIME
     Dates: start: 20020823, end: 20020823
  7. PREVACID [Concomitant]
     Route: 048
  8. LIDOCAINE [Concomitant]
     Dosage: UNK
     Route: 042
     Dates: start: 20020823, end: 20020823
  9. INDERAL [Concomitant]
     Route: 048
  10. MANNITOL [Concomitant]
     Dosage: 200 ML, UNK
     Route: 042
     Dates: start: 20020823, end: 20020823
  11. GLYBURIDE [Concomitant]
     Dosage: 10 MG, BID
     Route: 048
  12. QUININE SULFATE [Concomitant]
     Route: 048
  13. NITROGLYCERIN [Concomitant]
     Dosage: UNK
     Route: 061
  14. ANCEF [Concomitant]
     Dosage: 4 G, UNK
     Route: 042
     Dates: start: 20020823, end: 20020823
  15. HYDROCHLOROTHIAZIDE [Concomitant]
     Dosage: 1/2 TAB DAILY
     Route: 048
  16. FOLIC ACID [Concomitant]
  17. ZOCOR [Concomitant]
     Route: 048
  18. SILVER COLLOIDAL [Concomitant]
     Dosage: UNK
     Dates: start: 20020822, end: 20020822
  19. INSULIN [Concomitant]
     Dosage: UNK
     Route: 042
     Dates: start: 20020823
  20. NOREPINEPHRINE BITARTRATE [Concomitant]
     Dosage: 4 MG, UNK
     Route: 042
     Dates: start: 20020823, end: 20020823
  21. TRASYLOL [Suspect]
     Dosage: 50 ML/HOUR
     Dates: start: 20020823, end: 20020823
  22. GENTAMICIN [Concomitant]
  23. RED BLOOD CELLS [Concomitant]
     Dosage: 2 UNK, UNK
     Route: 042
     Dates: start: 20020823, end: 20020823
  24. ACCUPRIL [Concomitant]
     Dosage: 40 MG, QD
     Route: 048
  25. AVANDIA [Concomitant]
     Dosage: 4 MG, QD
     Route: 048
  26. PROTAMINE SULFATE [Concomitant]
     Dosage: 500 MG, UNK
     Route: 042
     Dates: start: 20020823, end: 20020823
  27. PHENYLEPHRINE HCL [Concomitant]
     Dosage: 40 MG, UNK
     Route: 042
     Dates: start: 20020823, end: 20020823
  28. DOPAMINE HCL [Concomitant]
     Dosage: 400 MG, UNK
     Route: 042
     Dates: start: 20020823, end: 20020823
  29. ANCEF [Concomitant]
     Dosage: 2 GM
     Route: 042
     Dates: start: 20020823
  30. GENTAMICIN [Concomitant]
     Dosage: 320 MG, UNK
     Route: 042
     Dates: start: 20020823, end: 20020823
  31. PLASMA [Concomitant]
     Dosage: 2 U, UNK
     Route: 042
     Dates: start: 20020823, end: 20020823
  32. PLATELETS [Concomitant]
     Dosage: 1 UNK, UNK
     Route: 042
     Dates: start: 20020823, end: 20020823

REACTIONS (13)
  - ANXIETY [None]
  - EMOTIONAL DISTRESS [None]
  - STRESS [None]
  - UNEVALUABLE EVENT [None]
  - INJURY [None]
  - RENAL FAILURE [None]
  - RENAL IMPAIRMENT [None]
  - FEAR [None]
  - PAIN [None]
  - MULTI-ORGAN FAILURE [None]
  - RENAL INJURY [None]
  - DEATH [None]
  - ANHEDONIA [None]
